FAERS Safety Report 7330820-5 (Version None)
Quarter: 2011Q1

REPORT INFORMATION
  Report Type: 
  Country: None (occurrence: None)
  Receive Date: 20110304
  Receipt Date: 20110228
  Transmission Date: 20110831
  Serious: No
  Sender: FDA-Public Use
  Company Number: US-PFIZER INC-2011043580

PATIENT
  Sex: Female
  Weight: 52.154 kg

DRUGS (3)
  1. PREMPRO [Suspect]
     Indication: MENOPAUSAL SYMPTOMS
     Dosage: 0.025/2.5 MG, DAILY
     Route: 048
     Dates: start: 20110101, end: 20110227
  2. XANAX [Concomitant]
     Indication: ANXIETY
     Dosage: UNK
  3. TRAZODONE [Concomitant]
     Indication: SLEEP DISORDER
     Dosage: UNK

REACTIONS (3)
  - HOT FLUSH [None]
  - ALOPECIA [None]
  - HYPERHIDROSIS [None]
